FAERS Safety Report 9099516 (Version 1)
Quarter: 2013Q1

REPORT INFORMATION
  Report Type: Report from Study
  Country: FR (occurrence: FR)
  Receive Date: 20130213
  Receipt Date: 20130213
  Transmission Date: 20140127
  Serious: Yes (Hospitalization)
  Sender: FDA-Public Use
  Company Number: FR-GILEAD-2013-0069399

PATIENT
  Age: 39 Year
  Sex: Male

DRUGS (9)
  1. TENOFOVIR DISOPROXIL FUMARATE [Suspect]
     Indication: HIV INFECTION
     Dosage: UNK
     Dates: start: 20110120, end: 20110512
  2. EPIVIR [Suspect]
     Indication: HIV INFECTION
     Dosage: UNK
     Dates: start: 20110120, end: 20110512
  3. SUSTIVA [Suspect]
     Indication: HIV INFECTION
     Dosage: UNK
     Dates: start: 20110120, end: 20110519
  4. EMTRICITABINE/TENOFOVIR DISOPROXIL FUMARATE [Suspect]
     Indication: HIV INFECTION
     Dosage: UNK
     Dates: start: 20110513
  5. ISENTRESS [Suspect]
     Indication: HIV INFECTION
     Dosage: UNK
     Dates: start: 20110520
  6. RIFAMPICIN [Concomitant]
     Dosage: UNK
     Dates: start: 20110318
  7. ISONIAZID [Concomitant]
     Dosage: UNK
     Dates: start: 20110318
  8. AMOXICILLIN [Concomitant]
     Dosage: UNK
     Dates: start: 20110106
  9. HYDROCORTISON                      /00028601/ [Concomitant]
     Dosage: UNK
     Dates: start: 20110706

REACTIONS (2)
  - Pericarditis [Recovered/Resolved]
  - Immune reconstitution inflammatory syndrome associated tuberculosis [Recovered/Resolved]
